FAERS Safety Report 17902979 (Version 3)
Quarter: 2020Q4

REPORT INFORMATION
  Report Type: Report from Study
  Country: None (occurrence: US)
  Receive Date: 20200617
  Receipt Date: 20201031
  Transmission Date: 20210113
  Serious: Yes (Hospitalization, Other)
  Sender: FDA-Public Use
  Company Number: US-ABBVIE-20K-163-3444776-00

PATIENT
  Age: 59 Year
  Sex: Male
  Weight: 227 kg

DRUGS (3)
  1. LANCETS [Concomitant]
     Active Substance: DEVICE
     Indication: TYPE 2 DIABETES MELLITUS
  2. HUMIRA [Suspect]
     Active Substance: ADALIMUMAB
     Indication: HIDRADENITIS
     Route: 058
     Dates: start: 2020
  3. HUMIRA [Suspect]
     Active Substance: ADALIMUMAB
     Route: 058

REACTIONS (14)
  - Pulmonary oedema [Not Recovered/Not Resolved]
  - Haemorrhage urinary tract [Recovered/Resolved]
  - Dysuria [Not Recovered/Not Resolved]
  - Urinary retention [Unknown]
  - Fluid retention [Not Recovered/Not Resolved]
  - Gastrointestinal oedema [Recovering/Resolving]
  - Pulmonary oedema [Recovered/Resolved]
  - Oedema blister [Not Recovered/Not Resolved]
  - Post procedural complication [Unknown]
  - Dyspnoea [Not Recovered/Not Resolved]
  - Complication associated with device [Unknown]
  - Fatigue [Unknown]
  - Cardiac failure [Recovering/Resolving]
  - Heart rate increased [Recovering/Resolving]

NARRATIVE: CASE EVENT DATE: 2020
